FAERS Safety Report 20615897 (Version 1)
Quarter: 2022Q1

REPORT INFORMATION
  Report Type: Report from Study
  Country: US (occurrence: US)
  Receive Date: 20220321
  Receipt Date: 20220321
  Transmission Date: 20220424
  Serious: No
  Sender: FDA-Public Use
  Company Number: US-NOVARTISTESTPH-NVSC2022US063544

PATIENT
  Sex: Male

DRUGS (2)
  1. AFINITOR [Suspect]
     Active Substance: EVEROLIMUS
     Indication: Astrocytoma, low grade
     Dosage: 7.5 MG, QD
     Route: 048
     Dates: start: 20140822
  2. AFINITOR [Suspect]
     Active Substance: EVEROLIMUS
     Dosage: 5 MG
     Route: 065

REACTIONS (2)
  - Drug level increased [Not Recovered/Not Resolved]
  - Blood triglycerides increased [Not Recovered/Not Resolved]
